FAERS Safety Report 7577930-5 (Version None)
Quarter: 2011Q2

REPORT INFORMATION
  Report Type: 
  Country: None (occurrence: None)
  Receive Date: 20110621
  Receipt Date: 20110608
  Transmission Date: 20111010
  Serious: Yes (Hospitalization)
  Sender: FDA-Public Use
  Company Number: JP-005540

PATIENT
  Age: 31 Year
  Sex: Female

DRUGS (2)
  1. HMG /06269502/ (HMG) 300 IU (NOT SPECIFIED) [Suspect]
     Indication: OVULATION INDUCTION
     Dosage: (300 IU INTRAMUSCULAR)
     Route: 030
  2. CLOMIFENE CITRATE (CLOMIFENE CITRATE) [Suspect]
     Indication: OVULATION INDUCTION

REACTIONS (9)
  - LOSS OF CONSCIOUSNESS [None]
  - ABDOMINAL PAIN UPPER [None]
  - HAEMORRHAGIC ASCITES [None]
  - OVARIAN RUPTURE [None]
  - URINE OUTPUT DECREASED [None]
  - ANAEMIA [None]
  - INTRA-ABDOMINAL HAEMORRHAGE [None]
  - ABDOMINAL DISTENSION [None]
  - ABDOMINAL PAIN [None]
